FAERS Safety Report 14646394 (Version 3)
Quarter: 2018Q2

REPORT INFORMATION
  Report Type: Spontaneous
  Country: US (occurrence: US)
  Receive Date: 20180316
  Receipt Date: 20180517
  Transmission Date: 20180711
  Serious: No
  Sender: FDA-Public Use
  Company Number: US-ASTRAZENECA-2018SE29544

PATIENT
  Age: 55 Year
  Sex: Female
  Weight: 99.8 kg

DRUGS (4)
  1. SYMBICORT [Suspect]
     Active Substance: BUDESONIDE\FORMOTEROL FUMARATE DIHYDRATE
     Indication: ASTHMA
     Dosage: 160/4.5 MCG, FOR ASTHMA, 2 PUFFS IN THE MORNING AND 2 PUFFS AT NIGHT TIME
     Route: 055
     Dates: start: 20180217
  2. POTASSIUM [Concomitant]
     Active Substance: POTASSIUM
  3. INSULIN [Concomitant]
     Active Substance: INSULIN NOS
  4. VENTOLIN [Concomitant]
     Active Substance: ALBUTEROL SULFATE

REACTIONS (11)
  - Visual impairment [Unknown]
  - Vision blurred [Unknown]
  - Intentional product misuse [Unknown]
  - Cataract [Unknown]
  - Macular degeneration [Unknown]
  - Diabetes mellitus [Unknown]
  - Overweight [Unknown]
  - Asthma [Unknown]
  - Nasopharyngitis [Unknown]
  - Drug dose omission [Unknown]
  - Device failure [Unknown]

NARRATIVE: CASE EVENT DATE: 1991
